FAERS Safety Report 14330735 (Version 2)
Quarter: 2018Q1

REPORT INFORMATION
  Report Type: Spontaneous
  Country: TW (occurrence: TW)
  Receive Date: 20171228
  Receipt Date: 20180109
  Transmission Date: 20180509
  Serious: Yes (Other)
  Sender: FDA-Public Use
  Company Number: TW-CONCORDIA PHARMACEUTICALS INC.-GSH201712-006709

PATIENT
  Age: 35 Year
  Sex: Male

DRUGS (4)
  1. ACETAZOLAMIDE. [Concomitant]
     Active Substance: ACETAZOLAMIDE
     Indication: UVEITIS
  2. 0.15% BRIMONIDINE [Concomitant]
     Indication: UVEITIS
  3. PREDNISOLONE. [Suspect]
     Active Substance: PREDNISOLONE
     Indication: UVEITIS
     Dosage: 1% TOPICAL
     Route: 061
  4. 0.5% TIMOLOL/ 2% DORZOLAMIDE [Concomitant]
     Indication: UVEITIS

REACTIONS (1)
  - Keratitis interstitial [Recovered/Resolved]
